FAERS Safety Report 24626127 (Version 3)
Quarter: 2024Q4

REPORT INFORMATION
  Report Type: Spontaneous
  Country: US (occurrence: US)
  Receive Date: 20241115
  Receipt Date: 20241230
  Transmission Date: 20250115
  Serious: Yes (Other)
  Sender: IPSEN BIOPHARMACEUTICALS, INC.
  Company Number: US-IPSEN Group, Research and Development-2024-22711

PATIENT
  Age: 1 Year
  Sex: Male
  Weight: 9.07 kg

DRUGS (11)
  1. TAZVERIK [Suspect]
     Active Substance: TAZEMETOSTAT HYDROBROMIDE
     Indication: Soft tissue sarcoma
     Dosage: 200 MG TWICE PER DAY
     Route: 048
     Dates: start: 20241031
  2. TAZVERIK [Suspect]
     Active Substance: TAZEMETOSTAT HYDROBROMIDE
     Dosage: 400 MG TWICE PER DAY STARTED IN LATE NOVEMBER OR EARLY DECEMBER
     Route: 048
     Dates: start: 2024, end: 20241205
  3. CEFDINIR [Concomitant]
     Active Substance: CEFDINIR
  4. CLINDAMYCIN [Concomitant]
     Active Substance: CLINDAMYCIN
  5. TYLENOL [Concomitant]
     Active Substance: ACETAMINOPHEN
  6. ZOFRAN [Concomitant]
     Active Substance: ONDANSETRON HYDROCHLORIDE
  7. BENADRYL [Concomitant]
     Active Substance: DIPHENHYDRAMINE HYDROCHLORIDE
  8. ATIVAN [Concomitant]
     Active Substance: LORAZEPAM
  9. OXYCODONE [Concomitant]
     Active Substance: OXYCODONE
  10. CLONIDINE [Concomitant]
     Active Substance: CLONIDINE
  11. GABAPENTIN [Concomitant]
     Active Substance: GABAPENTIN

REACTIONS (4)
  - Terminal state [Not Recovered/Not Resolved]
  - Nausea [Not Recovered/Not Resolved]
  - Off label use [Unknown]
  - Off label use [Unknown]
